FAERS Safety Report 7512586-9 (Version None)
Quarter: 2011Q2

REPORT INFORMATION
  Report Type: 
  Country: None (occurrence: None)
  Receive Date: 20110531
  Receipt Date: 20110524
  Transmission Date: 20111010
  Serious: Yes (Life-Threatening, Hospitalization)
  Sender: FDA-Public Use
  Company Number: JP-ROCHE-779389

PATIENT
  Sex: Female

DRUGS (5)
  1. ACTEMRA [Suspect]
     Indication: RHEUMATOID ARTHRITIS
     Dosage: UNCERTAIN DOSAGE AND 17 TIME ADMINISTERING
     Route: 041
     Dates: start: 20110209
  2. ARAVA [Concomitant]
     Dosage: DOSAGE IS UNCERTAIN.
     Route: 048
  3. MUCOSTA [Concomitant]
     Dosage: DOSAGE IS UNCERTAIN.  DOSE FROM:  PERORAL AGENT.
     Route: 048
  4. CLINORIL [Concomitant]
     Dosage: DOSAGE IS UNCERTAIN.
     Route: 048
  5. SIMVASTATIN [Concomitant]
     Dosage: DOSAGE IS UNCERTAIN.
     Route: 048

REACTIONS (1)
  - PALATITIS [None]
